FAERS Safety Report 13965761 (Version 4)
Quarter: 2017Q3

REPORT INFORMATION
  Report Type: Spontaneous
  Country: US (occurrence: US)
  Receive Date: 20170913
  Receipt Date: 20170922
  Transmission Date: 20171128
  Serious: Yes (Hospitalization, Other)
  Sender: FDA-Public Use
  Company Number: US-SA-A01200909316

PATIENT
  Age: 70 Year
  Sex: Male

DRUGS (29)
  1. TOBRAMYCIN. [Suspect]
     Active Substance: TOBRAMYCIN
     Route: 065
  2. AMIODARONE HYDROCHLORIDE. [Suspect]
     Active Substance: AMIODARONE HYDROCHLORIDE
     Route: 065
  3. ENOXAPARIN SODIUM. [Suspect]
     Active Substance: ENOXAPARIN SODIUM
     Route: 065
  4. DIPHENHYDRAMINE HYDROCHLORIDE. [Suspect]
     Active Substance: DIPHENHYDRAMINE HYDROCHLORIDE
     Route: 065
  5. THALIDOMIDE [Suspect]
     Active Substance: THALIDOMIDE
     Route: 065
  6. FILGRASTIM [Suspect]
     Active Substance: FILGRASTIM
     Route: 065
  7. OMEPRAZOLE. [Suspect]
     Active Substance: OMEPRAZOLE
     Route: 048
  8. LIDOCAINE HYDROCHLORIDE. [Suspect]
     Active Substance: LIDOCAINE HYDROCHLORIDE
     Dosage: UNIT DOSE: 5 PERCENT
     Route: 003
  9. MEROPENEM. [Suspect]
     Active Substance: MEROPENEM
     Route: 042
  10. ALPRAZOLAM. [Suspect]
     Active Substance: ALPRAZOLAM
     Route: 065
  11. PARACETAMOL [Suspect]
     Active Substance: ACETAMINOPHEN
     Route: 065
  12. CASPOFUNGIN ACETATE. [Suspect]
     Active Substance: CASPOFUNGIN ACETATE
     Route: 065
  13. TESTOSTERONE ENANTATE [Suspect]
     Active Substance: TESTOSTERONE
     Route: 051
  14. MELOXICAM. [Suspect]
     Active Substance: MELOXICAM
     Indication: PLASMA CELL MYELOMA
     Route: 065
  15. RANITIDINE. [Suspect]
     Active Substance: RANITIDINE
     Route: 065
  16. MORPHINE SULFATE. [Suspect]
     Active Substance: MORPHINE SULFATE
     Route: 065
  17. PANTOPRAZOLE [Suspect]
     Active Substance: PANTOPRAZOLE
     Route: 065
  18. NALOXONE HYDROCHLORIDE. [Suspect]
     Active Substance: NALOXONE HYDROCHLORIDE
     Route: 065
  19. HEPARIN SODIUM. [Suspect]
     Active Substance: HEPARIN SODIUM
     Dosage: SOLUTION FOR INJECTION
     Route: 065
  20. ZOLPIDEM [Suspect]
     Active Substance: ZOLPIDEM\ZOLPIDEM TARTRATE
     Route: 065
  21. HYDROCODONE [Suspect]
     Active Substance: HYDROCODONE
     Route: 065
  22. CEFEPIME HYDROCHLORIDE. [Suspect]
     Active Substance: CEFEPIME HYDROCHLORIDE
     Route: 042
  23. DAPTOMYCIN. [Suspect]
     Active Substance: DAPTOMYCIN
     Route: 042
  24. DEXAMETHASONE. [Suspect]
     Active Substance: DEXAMETHASONE
     Indication: PLASMA CELL MYELOMA
     Route: 065
  25. FLUCONAZOLE. [Suspect]
     Active Substance: FLUCONAZOLE
     Route: 048
  26. PAMIDRONATE DISODIUM. [Suspect]
     Active Substance: PAMIDRONATE DISODIUM
     Route: 065
  27. PEG-3350 AND ELECTROLYTES [Suspect]
     Active Substance: POLYETHYLENE GLYCOL 3350\POTASSIUM CHLORIDE\SODIUM BICARBONATE\SODIUM CHLORIDE\SODIUM SULFATE\SODIUM SULFATE ANHYDROUS
     Route: 048
  28. PROMETHAZINE [Suspect]
     Active Substance: PROMETHAZINE\PROMETHAZINE HYDROCHLORIDE
     Route: 065
  29. VANCOMYCIN HYDROCHLORIDE. [Suspect]
     Active Substance: VANCOMYCIN HYDROCHLORIDE
     Route: 042

REACTIONS (12)
  - Rash pustular [Unknown]
  - Blister [Unknown]
  - Atrial fibrillation [Unknown]
  - Acute generalised exanthematous pustulosis [Unknown]
  - Pyrexia [Unknown]
  - Generalised erythema [Unknown]
  - Rash [Unknown]
  - Rash generalised [Unknown]
  - Generalised oedema [Unknown]
  - Hyperkeratosis [Unknown]
  - Unresponsive to stimuli [Unknown]
  - Lethargy [Unknown]
